FAERS Safety Report 11481086 (Version 2)
Quarter: 2015Q4

REPORT INFORMATION
  Report Type: Spontaneous
  Country: US (occurrence: US)
  Receive Date: 20150909
  Receipt Date: 20151228
  Transmission Date: 20160304
  Serious: Yes (Hospitalization, Disabling, Other)
  Sender: FDA-Public Use
  Company Number: US-GLAXOSMITHKLINE-US2015GSK128637

PATIENT
  Age: 80 Year
  Sex: Male
  Weight: 82 kg

DRUGS (1)
  1. VOTRIENT [Suspect]
     Active Substance: PAZOPANIB HYDROCHLORIDE
     Indication: RENAL CANCER
     Dosage: 800 MG, QD
     Route: 065
     Dates: start: 20150708

REACTIONS (6)
  - Pain [Unknown]
  - Arteriovenous fistula [Unknown]
  - Lymph node haemorrhage [Unknown]
  - Hyperhidrosis [Unknown]
  - Chills [Unknown]
  - Haematoma [Unknown]

NARRATIVE: CASE EVENT DATE: 20150919
